FAERS Safety Report 19952162 (Version 1)
Quarter: 2021Q4

REPORT INFORMATION
  Report Type: Spontaneous
  Country: CA (occurrence: CA)
  Receive Date: 20211013
  Receipt Date: 20211013
  Transmission Date: 20220303
  Serious: Yes (Other)
  Sender: FDA-Public Use
  Company Number: CA-TEVA-2021-CA-1963952

PATIENT
  Age: 19 Year
  Sex: Female
  Weight: 63 kg

DRUGS (4)
  1. METHOTREXATE [Suspect]
     Active Substance: METHOTREXATE
     Indication: Product used for unknown indication
     Route: 058
  2. ADALIMUMAB [Concomitant]
     Active Substance: ADALIMUMAB
     Route: 058
  3. ASPIRIN [Concomitant]
     Active Substance: ASPIRIN
     Dosage: 1 DOSAGE FORMS DAILY;
     Route: 048
  4. PREDNISONE [Concomitant]
     Active Substance: PREDNISONE
     Dosage: 20 MILLIGRAM DAILY;
     Route: 048

REACTIONS (16)
  - Aneurysm [Recovered/Resolved]
  - Angiopathy [Recovered/Resolved]
  - Asthenia [Recovered/Resolved]
  - C-reactive protein increased [Recovered/Resolved]
  - Carotid artery stenosis [Recovered/Resolved]
  - Carotid bruit [Recovered/Resolved]
  - Chest pain [Recovered/Resolved]
  - Exercise tolerance decreased [Recovered/Resolved]
  - Hypotension [Recovered/Resolved]
  - Lymphocyte count increased [Recovered/Resolved]
  - Muscular weakness [Recovered/Resolved]
  - Radial pulse decreased [Recovered/Resolved]
  - Subclavian steal syndrome [Recovered/Resolved]
  - Vasculitis [Recovered/Resolved]
  - Off label use [Recovered/Resolved]
  - Product use issue [Recovered/Resolved]
